FAERS Safety Report 14850370 (Version 3)
Quarter: 2018Q3

REPORT INFORMATION
  Report Type: Spontaneous
  Country: IT (occurrence: GB)
  Receive Date: 20180505
  Receipt Date: 20180727
  Transmission Date: 20181010
  Serious: Yes (Other)
  Sender: FDA-Public Use
  Company Number: IT-AUROBINDO-AUR-APL-2018-023742

PATIENT
  Age: 40 Year
  Sex: Male

DRUGS (1)
  1. PAROXETINE. [Suspect]
     Active Substance: PAROXETINE
     Indication: DEPRESSION
     Dosage: 20 MILLIGRAM, ONCE A DAY
     Route: 048

REACTIONS (6)
  - Corneal oedema [Recovered/Resolved]
  - Ocular discomfort [Recovered/Resolved]
  - Angle closure glaucoma [Recovered/Resolved]
  - Intraocular pressure increased [Recovering/Resolving]
  - Vision blurred [Recovered/Resolved]
  - Eye irritation [Recovered/Resolved]
